FAERS Safety Report 8060537-3 (Version None)
Quarter: 2012Q1

REPORT INFORMATION
  Report Type: 
  Country: None (occurrence: None)
  Receive Date: 20120120
  Receipt Date: 20120116
  Transmission Date: 20120608
  Serious: Yes (Life-Threatening, Hospitalization)
  Sender: FDA-Public Use
  Company Number: CHPA2012US001421

PATIENT
  Age: 57 Year
  Sex: Male

DRUGS (1)
  1. EXCEDRIN (MIGRAINE) [Suspect]
     Dosage: 2 DF, UNK
     Route: 048
     Dates: start: 20120104, end: 20120105

REACTIONS (1)
  - RENAL FAILURE [None]
